FAERS Safety Report 7528431-1 (Version None)
Quarter: 2011Q2

REPORT INFORMATION
  Report Type: 
  Country: None (occurrence: None)
  Receive Date: 20110607
  Receipt Date: 20101112
  Transmission Date: 20111010
  Serious: No
  Sender: FDA-Public Use
  Company Number: US-ASTRAZENECA-2010SE59023

PATIENT
  Sex: Male

DRUGS (2)
  1. NONE REPORTED [Concomitant]
  2. PRILOSEC OTC [Suspect]
     Route: 048
     Dates: start: 20101027, end: 20101110

REACTIONS (5)
  - DIZZINESS [None]
  - HEADACHE [None]
  - CHEST DISCOMFORT [None]
  - ASTHENIA [None]
  - DYSPNOEA [None]
